FAERS Safety Report 15641056 (Version 1)
Quarter: 2018Q4

REPORT INFORMATION
  Report Type: Other
  Country: US (occurrence: US)
  Receive Date: 20181120
  Receipt Date: 20181120
  Transmission Date: 20190205
  Serious: No
  Sender: FDA-Public Use
  Company Number: US-LEADIANT BIOSCIENCES INC-2018STPI000499

PATIENT
  Sex: Male

DRUGS (1)
  1. CYSTARAN [Suspect]
     Active Substance: CYSTEAMINE HYDROCHLORIDE
     Indication: CORNEAL DEPOSITS
     Dosage: UNK
     Dates: start: 20150903

REACTIONS (1)
  - Renal failure [Unknown]
